FAERS Safety Report 6296250-2 (Version None)
Quarter: 2009Q3

REPORT INFORMATION
  Report Type: 
  Country: None (occurrence: None)
  Receive Date: 20090803
  Receipt Date: 20090803
  Transmission Date: 20100115
  Serious: No
  Sender: FDA-Public Use
  Company Number: None

PATIENT
  Age: 61 Year
  Sex: Female
  Weight: 71.6683 kg

DRUGS (1)
  1. VITAMIN D 50 M U CAP [Suspect]
     Indication: VITAMIN D DECREASED
     Dosage: 50 M U CAP 1X PER WEEK FOR 1 PO
     Route: 048
     Dates: start: 20090727, end: 20090727

REACTIONS (3)
  - HYPERSENSITIVITY [None]
  - HYPERTENSION [None]
  - TREMOR [None]
